FAERS Safety Report 22359602 (Version 1)
Quarter: 2023Q2

REPORT INFORMATION
  Report Type: Spontaneous
  Country: US (occurrence: US)
  Receive Date: 20230524
  Receipt Date: 20230524
  Transmission Date: 20230721
  Serious: Yes (Hospitalization)
  Sender: FDA-Public Use
  Company Number: US-CTI BIOPHARMA-2023US03649

PATIENT

DRUGS (21)
  1. VONJO [Suspect]
     Active Substance: PACRITINIB
     Indication: Chronic lymphocytic leukaemia
     Dosage: 100 MG, BID
     Route: 048
     Dates: start: 20230510
  2. OMEPRAZOLE [Concomitant]
     Active Substance: OMEPRAZOLE
  3. PLAVIX [Concomitant]
     Active Substance: CLOPIDOGREL BISULFATE
  4. PREMARIN [Concomitant]
     Active Substance: ESTROGENS, CONJUGATED
  5. ASCORBIC ACID\BIOTIN\CALCIUM PANTOTHENATE\CYANOCOBALAMIN\FOLIC ACID\NI [Concomitant]
     Active Substance: ASCORBIC ACID\BIOTIN\CALCIUM PANTOTHENATE\CYANOCOBALAMIN\FOLIC ACID\NIACINAMIDE\PYRIDOXINE HYDROCHLO
  6. TOPROL XL [Concomitant]
     Active Substance: METOPROLOL SUCCINATE
  7. TYLENOL [Concomitant]
     Active Substance: ACETAMINOPHEN
  8. VITAMIN D3 [Concomitant]
     Active Substance: CHOLECALCIFEROL
  9. ZYRTEC [Concomitant]
     Active Substance: CETIRIZINE HYDROCHLORIDE
  10. AMLODIPINE [Concomitant]
     Active Substance: AMLODIPINE BESYLATE
  11. CELEBREC [Concomitant]
  12. COLACE [Concomitant]
     Active Substance: DOCUSATE SODIUM
  13. CRANBERRY EXTRAKT [Concomitant]
  14. FLUTICASONE [Concomitant]
     Active Substance: FLUTICASONE
  15. GLUCOSAMINE + CHONDORITIN [Concomitant]
  16. HYDRALAZINE [Concomitant]
     Active Substance: HYDRALAZINE HYDROCHLORIDE
  17. HYDROXYZINE [Concomitant]
     Active Substance: HYDROXYZINE HYDROCHLORIDE
  18. LEVOFLOXACIN [Concomitant]
     Active Substance: LEVOFLOXACIN
  19. LEVOTHYROXINE [Concomitant]
     Active Substance: LEVOTHYROXINE
  20. METAMUCIL CALCIUM [Concomitant]
  21. MIRALAX [Concomitant]
     Active Substance: POLYETHYLENE GLYCOL 3350

REACTIONS (1)
  - Cerebrovascular accident [Recovering/Resolving]
